FAERS Safety Report 5092807-5 (Version None)
Quarter: 2006Q3

REPORT INFORMATION
  Report Type: 
  Country: None (occurrence: None)
  Receive Date: 20060828
  Receipt Date: 20060406
  Transmission Date: 20061208
  Serious: Yes (Life-Threatening, Other)
  Sender: FDA-Public Use
  Company Number: 805#9#2006-00029

PATIENT
  Age: 2 Day
  Sex: Male

DRUGS (4)
  1. ALPROSTADIL [Suspect]
     Indication: HEART DISEASE CONGENITAL
     Dosage: SEE IMAGE
     Route: 041
     Dates: start: 20040820, end: 20040821
  2. ALPROSTADIL [Suspect]
     Indication: HEART DISEASE CONGENITAL
     Dosage: SEE IMAGE
     Route: 041
     Dates: start: 20040821, end: 20040824
  3. MIDAZOLAM HCL [Concomitant]
  4. CEFAZOLIN SODIUM [Concomitant]

REACTIONS (5)
  - CARDIOPULMONARY FAILURE [None]
  - CONDITION AGGRAVATED [None]
  - INCORRECT DOSE ADMINISTERED [None]
  - INFANTILE APNOEIC ATTACK [None]
  - NEONATAL RESPIRATORY DEPRESSION [None]
